FAERS Safety Report 4712109-3 (Version None)
Quarter: 2005Q3

REPORT INFORMATION
  Report Type: 
  Country: None (occurrence: None)
  Receive Date: 20050712
  Receipt Date: 20050706
  Transmission Date: 20060218
  Serious: Yes (Life-Threatening)
  Sender: FDA-Public Use
  Company Number: 200511967JP

PATIENT
  Sex: 0

DRUGS (1)
  1. LASIX [Suspect]
     Route: 042

REACTIONS (2)
  - FEELING ABNORMAL [None]
  - RASH [None]
